FAERS Safety Report 5255582-7 (Version None)
Quarter: 2007Q1

REPORT INFORMATION
  Report Type: 
  Country: None (occurrence: None)
  Receive Date: 20070305
  Receipt Date: 20070226
  Transmission Date: 20070707
  Serious: Yes (Hospitalization)
  Sender: FDA-Public Use
  Company Number: US-ROXANE LABORATORIES, INC-2007-BP-02661RO

PATIENT
  Sex: Female
  Weight: 49 kg

DRUGS (7)
  1. PREDNISONE [Suspect]
     Indication: POLYMYALGIA RHEUMATICA
     Dosage: 10 MG/DAY
     Route: 048
     Dates: start: 20060101, end: 20061101
  2. PREDNISONE [Suspect]
     Dosage: 5 MG/DAY
     Route: 048
     Dates: start: 20061101
  3. PREDNISONE [Suspect]
     Dosage: 9 MG/DAY
     Route: 048
  4. HYDRALAZINE HCL [Concomitant]
     Indication: HYPERTENSION
     Route: 048
  5. NORVASC [Concomitant]
     Indication: HYPERTENSION
     Route: 048
  6. HYDROCHLOROTHIAZIDE [Concomitant]
     Indication: HYPERTENSION
     Route: 048
  7. CALCIUM D [Concomitant]

REACTIONS (4)
  - CHEST DISCOMFORT [None]
  - CONTUSION [None]
  - NAUSEA [None]
  - OESOPHAGEAL PAIN [None]
